FAERS Safety Report 16895497 (Version 1)
Quarter: 2019Q4

REPORT INFORMATION
  Report Type: Spontaneous
  Country: US (occurrence: US)
  Receive Date: 20191008
  Receipt Date: 20191008
  Transmission Date: 20200122
  Serious: Yes (Hospitalization)
  Sender: FDA-Public Use
  Company Number: US-ASTRAZENECA-2019SF39683

PATIENT
  Sex: Male
  Weight: 69.9 kg

DRUGS (3)
  1. WELLBUTRIN [Concomitant]
     Active Substance: BUPROPION HYDROCHLORIDE
     Dosage: 150 TWO TIMES A DAY
     Route: 048
  2. SYMBICORT [Suspect]
     Active Substance: BUDESONIDE\FORMOTEROL FUMARATE DIHYDRATE
     Dosage: 160/4.5 MCG 120 DOSE INHALER, TWO PUFFS TWICE A DAY
     Route: 055
  3. LEDOPA [LEVODOPA] [Suspect]
     Active Substance: LEVODOPA
     Route: 065

REACTIONS (16)
  - Vomiting [Unknown]
  - Dyspnoea [Not Recovered/Not Resolved]
  - Disability [Not Recovered/Not Resolved]
  - Blood pressure abnormal [Unknown]
  - Chronic obstructive pulmonary disease [Not Recovered/Not Resolved]
  - Balance disorder [Not Recovered/Not Resolved]
  - Atrial fibrillation [Unknown]
  - Fall [Unknown]
  - Macular degeneration [Not Recovered/Not Resolved]
  - Body height decreased [Not Recovered/Not Resolved]
  - Weight decreased [Not Recovered/Not Resolved]
  - Chest injury [Unknown]
  - Duodenal ulcer [Unknown]
  - Parkinson^s disease [Not Recovered/Not Resolved]
  - Syncope [Not Recovered/Not Resolved]
  - Tremor [Not Recovered/Not Resolved]
